FAERS Safety Report 5476409-4 (Version None)
Quarter: 2007Q4

REPORT INFORMATION
  Report Type: 
  Country: None (occurrence: None)
  Receive Date: 20071003
  Receipt Date: 20070924
  Transmission Date: 20080405
  Serious: Yes (Other)
  Sender: FDA-Public Use
  Company Number: DE-PFIZER INC-2007080075

PATIENT
  Sex: Female

DRUGS (5)
  1. CABASERIL [Suspect]
     Indication: RESTLESS LEGS SYNDROME
     Route: 048
  2. TALVOSILEN [Interacting]
     Indication: PROCEDURAL PAIN
     Route: 048
     Dates: start: 20070901, end: 20070901
  3. THYRONAJOD [Concomitant]
  4. CALCIUM [Concomitant]
  5. ENALAPRIL MALEATE [Concomitant]

REACTIONS (3)
  - DRUG INTERACTION [None]
  - RESTLESS LEGS SYNDROME [None]
  - UPPER LIMB FRACTURE [None]
